FAERS Safety Report 17690570 (Version 2)
Quarter: 2020Q2

REPORT INFORMATION
  Report Type: Spontaneous
  Country: US (occurrence: US)
  Receive Date: 20200421
  Receipt Date: 20200428
  Transmission Date: 20200714
  Serious: No
  Sender: FDA-Public Use
  Company Number: US-009507513-2004USA003689

PATIENT
  Age: 59 Year
  Sex: Female

DRUGS (1)
  1. DULERA [Suspect]
     Active Substance: FORMOTEROL FUMARATE DIHYDRATE\MOMETASONE FUROATE
     Dosage: ^ONE TO TWO PUFFS ONCE OR TWICE A DAY
     Dates: start: 20200317

REACTIONS (4)
  - No adverse event [Unknown]
  - Poor quality device used [Unknown]
  - Inappropriate schedule of product administration [Unknown]
  - Product quality issue [Unknown]

NARRATIVE: CASE EVENT DATE: 2020
